FAERS Safety Report 24093063 (Version 1)
Quarter: 2024Q3

REPORT INFORMATION
  Report Type: Spontaneous
  Country: US (occurrence: US)
  Receive Date: 20240715
  Receipt Date: 20240715
  Transmission Date: 20241017
  Serious: Yes (Other)
  Sender: NOVO NORDISK
  Company Number: US-NOVOPROD-1247860

PATIENT
  Age: 70 Year

DRUGS (1)
  1. OZEMPIC [Suspect]
     Active Substance: SEMAGLUTIDE
     Indication: Diabetes mellitus
     Dosage: UNK
     Route: 058
     Dates: start: 202304

REACTIONS (6)
  - Tooth extraction [Unknown]
  - Ill-defined disorder [Unknown]
  - Constipation [Unknown]
  - Nausea [Unknown]
  - Flatulence [Unknown]
  - Off label use [Unknown]
